FAERS Safety Report 17001112 (Version 1)
Quarter: 2019Q4

REPORT INFORMATION
  Report Type: Spontaneous
  Country: US (occurrence: US)
  Receive Date: 20191106
  Receipt Date: 20191106
  Transmission Date: 20200122
  Serious: No
  Sender: FDA-Public Use
  Company Number: US-PURDUE-USA-2019-0147379

PATIENT
  Sex: Female
  Weight: 62.59 kg

DRUGS (1)
  1. MORPHINE SULFATE EXTENDED-RELEASE TABLETS (RHODES 74-769, 74-862) [Suspect]
     Active Substance: MORPHINE SULFATE
     Indication: PAIN
     Dosage: 15 MG, Q8H
     Route: 048

REACTIONS (5)
  - Hyperhidrosis [Unknown]
  - Inadequate analgesia [Unknown]
  - Depressed mood [Unknown]
  - Feeling hot [Unknown]
  - Unevaluable event [Unknown]
